FAERS Safety Report 9941571 (Version 2)
Quarter: 2014Q1

REPORT INFORMATION
  Report Type: Report from Study
  Country: US (occurrence: US)
  Receive Date: 20140303
  Receipt Date: 20140303
  Transmission Date: 20141002
  Serious: No
  Sender: FDA-Public Use
  Company Number: US-ABBVIE-13P-163-1039488-00

PATIENT
  Age: 64 Year
  Sex: Female
  Weight: 63.56 kg

DRUGS (12)
  1. HUMIRA [Suspect]
     Indication: POLYARTHRITIS
     Dates: start: 20130107
  2. HUMIRA [Suspect]
     Indication: RHEUMATOID ARTHRITIS
  3. AMITRIPTYLINE [Concomitant]
     Indication: COLITIS
  4. CHLOR KON [Concomitant]
     Indication: MINERAL SUPPLEMENTATION
     Dosage: 20-2 MEQ
  5. OMEPRAZOLE [Concomitant]
     Indication: GASTRIC DISORDER
  6. METAROL [Concomitant]
     Indication: RHEUMATOID ARTHRITIS
  7. TRANXENE [Concomitant]
     Indication: INSOMNIA
  8. HYOSCYAMINE SULFATE [Concomitant]
     Indication: ABDOMINAL PAIN UPPER
  9. LIDODERM PATCHES 5% [Concomitant]
     Indication: ABDOMINAL PAIN UPPER
     Dosage: 12 HRS ON, 12 HRS OFF
  10. SUCRALFATE [Concomitant]
     Indication: GASTRIC DISORDER
  11. DYAZIDE MAXIDE [Concomitant]
     Indication: BLOOD PRESSURE
     Dosage: 75.5/25 MG; 1/2 A DAY
  12. DYAZIDE MAXIDE [Concomitant]
     Indication: DIURETIC THERAPY

REACTIONS (10)
  - Off label use [Not Recovered/Not Resolved]
  - Injection site pain [Not Recovered/Not Resolved]
  - Constipation [Not Recovered/Not Resolved]
  - Fatigue [Not Recovered/Not Resolved]
  - Injection site rash [Not Recovered/Not Resolved]
  - Rash [Not Recovered/Not Resolved]
  - Amnesia [Not Recovered/Not Resolved]
  - Asthenia [Not Recovered/Not Resolved]
  - Hyperhidrosis [Not Recovered/Not Resolved]
  - Hot flush [Not Recovered/Not Resolved]
